FAERS Safety Report 14116859 (Version 8)
Quarter: 2021Q1

REPORT INFORMATION
  Report Type: Report from Study
  Country: PA (occurrence: PA)
  Receive Date: 20171023
  Receipt Date: 20210120
  Transmission Date: 20210419
  Serious: Yes (Other)
  Sender: FDA-Public Use
  Company Number: PHHY2017PA153036

PATIENT
  Age: 46 Year
  Sex: Female

DRUGS (2)
  1. GILENYA [Suspect]
     Active Substance: FINGOLIMOD HYDROCHLORIDE
     Dosage: 0.5 MG, TAKING ONE DAY AND THE OTHER NO
     Route: 048
  2. GILENYA [Suspect]
     Active Substance: FINGOLIMOD HYDROCHLORIDE
     Indication: MULTIPLE SCLEROSIS
     Dosage: 0.5 MG, QD
     Route: 048
     Dates: start: 20171012

REACTIONS (27)
  - Memory impairment [Unknown]
  - COVID-19 [Not Recovered/Not Resolved]
  - Tongue discomfort [Unknown]
  - Cough [Not Recovered/Not Resolved]
  - Balance disorder [Unknown]
  - Anxiety [Unknown]
  - Cerebral disorder [Unknown]
  - Headache [Not Recovered/Not Resolved]
  - Seizure [Unknown]
  - Muscular weakness [Unknown]
  - Sensory disturbance [Unknown]
  - Multiple sclerosis relapse [Unknown]
  - Hypoacusis [Unknown]
  - Inappropriate schedule of product administration [Unknown]
  - Tinnitus [Unknown]
  - Stress [Unknown]
  - Hypoaesthesia [Unknown]
  - Muscle spasms [Unknown]
  - Abdominal pain upper [Unknown]
  - Dysgeusia [Unknown]
  - Fear [Unknown]
  - Heart rate decreased [Unknown]
  - Asthenia [Not Recovered/Not Resolved]
  - Feeling abnormal [Unknown]
  - Ear discomfort [Unknown]
  - Blood pressure decreased [Unknown]
  - Dizziness [Unknown]

NARRATIVE: CASE EVENT DATE: 20201224
